FAERS Safety Report 25011273 (Version 2)
Quarter: 2025Q1

REPORT INFORMATION
  Report Type: Report from Study
  Country: GB (occurrence: GB)
  Receive Date: 20250226
  Receipt Date: 20250325
  Transmission Date: 20250408
  Serious: Yes (Other)
  Sender: NOVARTIS
  Company Number: GB-002147023-NVSC2024GB174184

PATIENT
  Age: 46 Year
  Sex: Female

DRUGS (2)
  1. KESIMPTA [Suspect]
     Active Substance: OFATUMUMAB
     Indication: Multiple sclerosis
     Dosage: 20 MG, QW
     Route: 058
     Dates: start: 20240816
  2. KESIMPTA [Suspect]
     Active Substance: OFATUMUMAB
     Dosage: 20 MG, QMO
     Route: 058

REACTIONS (7)
  - Lower respiratory tract infection [Unknown]
  - Pneumonitis [Unknown]
  - Uterine cancer [Unknown]
  - Neoplasm malignant [Unknown]
  - Bone pain [Not Recovered/Not Resolved]
  - Illness [Not Recovered/Not Resolved]
  - Migraine [Not Recovered/Not Resolved]
